FAERS Safety Report 24437758 (Version 1)
Quarter: 2024Q4

REPORT INFORMATION
  Report Type: Spontaneous
  Country: US (occurrence: None)
  Receive Date: 20241014
  Receipt Date: 20241014
  Transmission Date: 20250115
  Serious: Yes (Hospitalization)
  Sender: Public
  Company Number: None

PATIENT
  Sex: Female

DRUGS (1)
  1. DROXIDOPA [Suspect]
     Active Substance: DROXIDOPA
     Indication: Parkinson^s disease
     Dosage: FREQUENCY : TWICE A DAY;?
     Route: 048
     Dates: start: 202403

REACTIONS (3)
  - Blood disorder [None]
  - Unresponsive to stimuli [None]
  - Eating disorder [None]
